FAERS Safety Report 9861195 (Version 1)
Quarter: 2014Q1

REPORT INFORMATION
  Report Type: Spontaneous
  Country: US (occurrence: None)
  Receive Date: 20140131
  Receipt Date: 20140131
  Transmission Date: 20141002
  Serious: Yes (Other)
  Sender: FDA-Public Use
  Company Number: None

PATIENT
  Age: 31 Year
  Sex: Female
  Weight: 56.7 kg

DRUGS (2)
  1. JUNEL FE [Suspect]
     Indication: UTERINE LEIOMYOMA
     Dosage: 1 A DAY ONCE DAILY TAKEN BY MOUTH
     Route: 048
     Dates: start: 20131218, end: 20140130
  2. JUNEL FE [Suspect]
     Indication: MENSTRUATION IRREGULAR
     Dosage: 1 A DAY ONCE DAILY TAKEN BY MOUTH
     Route: 048
     Dates: start: 20131218, end: 20140130

REACTIONS (6)
  - Mood swings [None]
  - Weight decreased [None]
  - Dyspnoea [None]
  - Eyelid oedema [None]
  - Emotional disorder [None]
  - Rash [None]
